FAERS Safety Report 16813195 (Version 1)
Quarter: 2019Q3

REPORT INFORMATION
  Report Type: Other
  Country: US (occurrence: US)
  Receive Date: 20190916
  Receipt Date: 20190916
  Transmission Date: 20191005
  Serious: No
  Sender: FDA-Public Use
  Company Number: US-LEADIANT BIOSCIENCES INC-2019STPI000317

PATIENT
  Age: 24 Year
  Sex: Female

DRUGS (1)
  1. MATULANE [Suspect]
     Active Substance: PROCARBAZINE HYDROCHLORIDE
     Indication: CARCINOID TUMOUR
     Dosage: 150 MILLIGRAM, QD FOR 7 DAYS, EACH 21-DAY CYCLE
     Route: 048
     Dates: start: 20190615

REACTIONS (4)
  - Muscular weakness [Recovered/Resolved]
  - Presyncope [Recovered/Resolved]
  - Menstruation irregular [Recovered/Resolved]
  - Arthralgia [Recovered/Resolved]

NARRATIVE: CASE EVENT DATE: 20190626
